FAERS Safety Report 9748093 (Version 2)
Quarter: 2013Q4

REPORT INFORMATION
  Report Type: Report from Study
  Country: FR (occurrence: FR)
  Receive Date: 20131212
  Receipt Date: 20131212
  Transmission Date: 20140711
  Serious: Yes (Hospitalization, Other)
  Sender: FDA-Public Use
  Company Number: FR-ALEXION PHARMACEUTICALS INC.-A201300135

PATIENT
  Age: 0 Day
  Sex: Female
  Weight: 1.8 kg

DRUGS (1)
  1. SOLIRIS [Suspect]
     Indication: FOETAL EXPOSURE DURING PREGNANCY
     Dosage: MAINTENANCE PHASE
     Route: 064
     Dates: end: 20130103

REACTIONS (6)
  - Foetal growth restriction [Recovering/Resolving]
  - Breech presentation [Recovered/Resolved]
  - Premature baby [Unknown]
  - Poor sucking reflex [Unknown]
  - Cerebrovascular disorder [Unknown]
  - Placental disorder [Unknown]
